FAERS Safety Report 4293611-8 (Version None)
Quarter: 2004Q1

REPORT INFORMATION
  Report Type: 
  Country: None (occurrence: None)
  Receive Date: 20040211
  Receipt Date: 20040211
  Transmission Date: 20041129
  Serious: Yes (Other)
  Sender: FDA-Public Use
  Company Number: None

PATIENT
  Age: 52 Year
  Sex: Female

DRUGS (2)
  1. PEMOLINE 75 MG QULITEST [Suspect]
     Indication: NARCOLEPSY
     Dosage: 75 MG ONE PO QD
     Route: 048
     Dates: start: 20031201, end: 20040101
  2. PEMOLINE 75 MG QULITEST [Suspect]
     Indication: SOMNOLENCE
     Dosage: 75 MG ONE PO QD
     Route: 048
     Dates: start: 20031201, end: 20040101

REACTIONS (4)
  - DIZZINESS [None]
  - FATIGUE [None]
  - HEADACHE [None]
  - PHARMACEUTICAL PRODUCT COMPLAINT [None]
